FAERS Safety Report 5949845 (Version 2)
Quarter: 2013Q4

REPORT INFORMATION
  Report Type: Report from Study
  Country: GB (occurrence: GB)
  Receive Date: 20051222
  Receipt Date: 20131108
  Transmission Date: 20140711
  Serious: Yes (Hospitalization, Disabling, Other)
  Sender: FDA-Public Use
  Company Number: GB-BRISTOL-MYERS SQUIBB COMPANY-12862736

PATIENT
  Age: 30 Year
  Sex: Male

DRUGS (16)
  1. PACLITAXEL [Suspect]
     Indication: GERM CELL CANCER
     Route: 042
     Dates: start: 20050131, end: 20050221
  2. CISPLATIN [Suspect]
     Indication: GERM CELL CANCER
     Dates: start: 20050131, end: 20050419
  3. ETOPOSIDE [Suspect]
     Indication: GERM CELL CANCER
     Dates: start: 20050131, end: 20050419
  4. BLEOMYCIN HCL [Suspect]
     Indication: GERM CELL CANCER
     Route: 042
     Dates: start: 20050131, end: 20050430
  5. SEVREDOL [Concomitant]
     Dates: start: 20050127
  6. ALLOPURINOL [Concomitant]
     Dates: start: 20050222, end: 20050228
  7. DEXAMETHASONE [Concomitant]
     Dates: start: 20050127, end: 20050211
  8. MST [Concomitant]
     Dates: start: 20050228
  9. RANITIDINE [Concomitant]
     Dates: start: 20050127
  10. DOMPERIDONE [Concomitant]
     Dates: start: 20050228, end: 20050305
  11. GRANULOCYTE COLONY-STIMULATING FACTOR NOS [Concomitant]
     Dates: start: 20050228, end: 20050310
  12. BENDROFLUAZIDE [Concomitant]
     Dates: start: 20050127
  13. FRAGMIN [Concomitant]
     Dates: start: 20050221, end: 20050226
  14. CLEXANE [Concomitant]
     Dates: start: 20050223, end: 20050226
  15. CO-CODAMOL [Concomitant]
     Dates: start: 20050221, end: 20050223
  16. CIPROFLOXACIN [Concomitant]
     Dates: start: 20050228, end: 20050310

REACTIONS (8)
  - Neutropenic sepsis [Recovered/Resolved]
  - Nausea [Not Recovered/Not Resolved]
  - Vomiting [Not Recovered/Not Resolved]
  - Lower respiratory tract infection [Recovered/Resolved]
  - Vena cava thrombosis [Recovered/Resolved]
  - Stomatitis [Not Recovered/Not Resolved]
  - Lethargy [Recovering/Resolving]
  - Feeling abnormal [Recovered/Resolved]
